FAERS Safety Report 5503826-6 (Version None)
Quarter: 2007Q4

REPORT INFORMATION
  Report Type: 
  Country: None (occurrence: None)
  Receive Date: 20071030
  Receipt Date: 20070820
  Transmission Date: 20080405
  Serious: No
  Sender: FDA-Public Use
  Company Number: 266738

PATIENT
  Age: 63 Year
  Sex: Male

DRUGS (3)
  1. LEVEMIR [Suspect]
     Indication: TYPE 2 DIABETES MELLITUS
     Dosage: 20 U, QD, SUBCUTANEOUS
     Route: 058
     Dates: start: 20070817
  2. BYETTA (EXENATIDE, EXENATIDE) [Concomitant]
  3. METFORMIN HCL [Concomitant]

REACTIONS (2)
  - ABDOMINAL PAIN [None]
  - BACK PAIN [None]
